FAERS Safety Report 26209181 (Version 1)
Quarter: 2025Q4

REPORT INFORMATION
  Report Type: Spontaneous
  Country: US (occurrence: US)
  Receive Date: 20251229
  Receipt Date: 20251229
  Transmission Date: 20260118
  Serious: Yes (Hospitalization, Other)
  Sender: PURDUE
  Company Number: US-PURDUE-USA-2025-0323375

PATIENT
  Age: 65 Year
  Sex: Female

DRUGS (3)
  1. DEXTROAMPHETAMINE SACCHARATE, AMPHETAMINE ASPARTATE, DEXTROAMPHETAMINE [Suspect]
     Active Substance: AMPHETAMINE ASPARTATE\AMPHETAMINE SULFATE\DEXTROAMPHETAMINE SACCHARATE\DEXTROAMPHETAMINE SULFATE
     Indication: Product used for unknown indication
     Dosage: UNK
     Route: 048
  2. DRONABINOL [Suspect]
     Active Substance: DRONABINOL
     Indication: Product used for unknown indication
     Dosage: UNK
     Route: 048
  3. METHAMPHETAMINE [Suspect]
     Active Substance: METHAMPHETAMINE
     Indication: Product used for unknown indication
     Dosage: UNK
     Route: 065

REACTIONS (9)
  - Torsade de pointes [Unknown]
  - Cardiac arrest [Unknown]
  - Ventricular tachycardia [Unknown]
  - Hypomagnesaemia [Unknown]
  - Acute kidney injury [Unknown]
  - Substance use disorder [Unknown]
  - Toxic encephalopathy [Unknown]
  - Drug screen positive [Unknown]
  - Stress cardiomyopathy [Unknown]
